FAERS Safety Report 16381962 (Version 2)
Quarter: 2019Q2

REPORT INFORMATION
  Report Type: Report from Study
  Country: None (occurrence: BR)
  Receive Date: 20190603
  Receipt Date: 20190605
  Transmission Date: 20190711
  Serious: Yes (Other)
  Sender: FDA-Public Use
  Company Number: BR-ABBVIE-19K-020-2804910-00

PATIENT
  Sex: Male

DRUGS (1)
  1. HUMIRA [Suspect]
     Active Substance: ADALIMUMAB
     Indication: CROHN^S DISEASE
     Route: 058
     Dates: start: 20170801

REACTIONS (4)
  - Tooth loss [Unknown]
  - Tooth erosion [Unknown]
  - Arthralgia [Unknown]
  - Night sweats [Unknown]

NARRATIVE: CASE EVENT DATE: 2018
